FAERS Safety Report 7036273-9 (Version None)
Quarter: 2010Q4

REPORT INFORMATION
  Report Type: 
  Country: None (occurrence: None)
  Receive Date: 20101008
  Receipt Date: 20100929
  Transmission Date: 20110411
  Serious: Yes (Other)
  Sender: FDA-Public Use
  Company Number: US-ABBOTT-10P-163-0674664-00

PATIENT
  Sex: Female
  Weight: 82.628 kg

DRUGS (1)
  1. LUPRON DEPOT [Suspect]
     Indication: ENDOMETRIOSIS
     Dosage: STOPPED THERAPY COMPLETELY ON 29 SEP 2010
     Route: 050

REACTIONS (7)
  - ABDOMINAL DISTENSION [None]
  - DECREASED APPETITE [None]
  - DRUG INEFFECTIVE [None]
  - ENDOMETRIOSIS [None]
  - INFLAMMATION [None]
  - PAIN [None]
  - WEIGHT INCREASED [None]
